FAERS Safety Report 8462781-X (Version None)
Quarter: 2012Q2

REPORT INFORMATION
  Report Type: 
  Country: None (occurrence: None)
  Receive Date: 20120625
  Receipt Date: 20120614
  Transmission Date: 20120825
  Serious: Yes (Hospitalization, Other)
  Sender: FDA-Public Use
  Company Number: AU-ASTRAZENECA-2012SE39813

PATIENT
  Age: 0 Day
  Sex: Male
  Weight: 3.8 kg

DRUGS (4)
  1. VENLAFAXINE HCL [Concomitant]
     Indication: ANTIDEPRESSANT THERAPY
     Dosage: 225 MG DAILY FROM PRE-PREGNANCY
     Route: 064
  2. BLACKMORES [Concomitant]
     Indication: VITAMIN SUPPLEMENTATION
     Dosage: 1 TABLET DAILY FROM 1ST TRIMESTER UNTIL DELIVERY
     Route: 064
  3. SEROQUEL XR [Suspect]
     Indication: PSYCHOTIC DISORDER
     Route: 064
  4. VENLAFAXINE HCL [Concomitant]
     Dosage: 150 MG DAILY FROM 4/40 WEEKS OF GESTATION
     Route: 064

REACTIONS (1)
  - DRUG WITHDRAWAL SYNDROME NEONATAL [None]
